FAERS Safety Report 18542752 (Version 1)
Quarter: 2020Q4

REPORT INFORMATION
  Report Type: Spontaneous
  Country: IN (occurrence: IN)
  Receive Date: 20201125
  Receipt Date: 20201125
  Transmission Date: 20210114
  Serious: Yes (Death, Hospitalization, Other)
  Sender: FDA-Public Use
  Company Number: IN-AMGEN-INDSP2020187553

PATIENT
  Age: 31 Year
  Sex: Male

DRUGS (2)
  1. FILGRASTIM [Suspect]
     Active Substance: FILGRASTIM
     Indication: FEBRILE NEUTROPENIA
     Dosage: UNK
     Route: 065
  2. CISPLATIN. [Concomitant]
     Active Substance: CISPLATIN
     Indication: METASTATIC SQUAMOUS CELL CARCINOMA
     Dosage: 40 MILLIGRAM/SQ. METER, QWK
     Dates: start: 2019

REACTIONS (4)
  - Blood count abnormal [Unknown]
  - Pneumonia fungal [Fatal]
  - Bone marrow failure [Unknown]
  - Neutropenic sepsis [Fatal]
